FAERS Safety Report 22595474 (Version 5)
Quarter: 2024Q4

REPORT INFORMATION
  Report Type: Spontaneous
  Country: US (occurrence: US)
  Receive Date: 20230613
  Receipt Date: 20241120
  Transmission Date: 20250114
  Serious: Yes (Other)
  Sender: PFIZER
  Company Number: US-PFIZER INC-PV202200119172

PATIENT
  Age: 86 Year
  Sex: Female

DRUGS (2)
  1. IBRANCE [Suspect]
     Active Substance: PALBOCICLIB
     Indication: Breast cancer metastatic
     Dosage: 125 MG
     Route: 048
     Dates: start: 20210402
  2. IBRANCE [Suspect]
     Active Substance: PALBOCICLIB
     Dosage: DAILY ON DAYS 1-21 OF A 28 DAY CYCLE. TAKE WHOLE W/ WATER +  FOOD, AT APPROX SAME TIME EACH DAY
     Route: 048

REACTIONS (3)
  - Pain [Not Recovered/Not Resolved]
  - Bone pain [Not Recovered/Not Resolved]
  - Feeling abnormal [Unknown]
